FAERS Safety Report 5078842-1 (Version None)
Quarter: 2006Q3

REPORT INFORMATION
  Report Type: 
  Country: None (occurrence: None)
  Receive Date: 20060809
  Receipt Date: 20060727
  Transmission Date: 20061208
  Serious: Yes (Other)
  Sender: FDA-Public Use
  Company Number: 200612344BCC

PATIENT
  Age: 68 Year
  Sex: Male
  Weight: 81.6475 kg

DRUGS (6)
  1. ASPIRIN [Suspect]
     Indication: MYOCARDIAL INFARCTION
     Dosage: 325 MG, QD, ORAL
     Route: 048
     Dates: end: 20020101
  2. ASPIRIN [Suspect]
     Dosage: 81 MG, QD, ORAL
     Route: 048
     Dates: start: 20020101
  3. PLAVIX [Concomitant]
  4. HYZAAR [Concomitant]
     Indication: PROPHYLAXIS
  5. ZOCOR [Concomitant]
  6. TOPROL-XL [Concomitant]

REACTIONS (2)
  - BLADDER CANCER [None]
  - CORONARY ARTERIAL STENT INSERTION [None]
